FAERS Safety Report 5584343-4 (Version None)
Quarter: 2008Q1

REPORT INFORMATION
  Report Type: 
  Country: None (occurrence: None)
  Receive Date: 20080108
  Receipt Date: 20080102
  Transmission Date: 20080703
  Serious: Yes (Other)
  Sender: FDA-Public Use
  Company Number: US-ASTRAZENECA-2008UW00113

PATIENT
  Age: 76 Year
  Sex: Female
  Weight: 83.9 kg

DRUGS (4)
  1. ARIMIDEX [Suspect]
     Indication: BREAST CANCER
     Route: 048
     Dates: start: 20070101, end: 20070101
  2. GLUCOPHAGE [Concomitant]
  3. ATENOLOL [Concomitant]
  4. LIPITOR [Concomitant]

REACTIONS (5)
  - ARTHRALGIA [None]
  - ARTHRITIS [None]
  - ARTHROPATHY [None]
  - MUSCLE SPASMS [None]
  - PAIN IN EXTREMITY [None]
